FAERS Safety Report 10055667 (Version 1)
Quarter: 2014Q2

REPORT INFORMATION
  Report Type: Spontaneous
  Country: GB (occurrence: GB)
  Receive Date: 20140403
  Receipt Date: 20140403
  Transmission Date: 20141212
  Serious: Yes (Hospitalization, Other)
  Sender: FDA-Public Use
  Company Number: GB-ACCORD-022725

PATIENT
  Age: 67 Year
  Sex: Male

DRUGS (4)
  1. GEMCITABINE/GEMCITABINE HYDROCHLORIDE [Suspect]
     Indication: BLADDER CANCER
     Route: 042
     Dates: start: 20130523, end: 20130905
  2. CISPLATIN [Suspect]
     Indication: BLADDER CANCER
     Route: 042
     Dates: start: 20130523, end: 20130829
  3. OMEPRAZOLE [Concomitant]
     Dates: start: 20130529, end: 20131003
  4. METOCLOPRAMIDE [Concomitant]
     Dates: start: 20130523, end: 20131003

REACTIONS (3)
  - Thrombocytopenia [Recovered/Resolved]
  - Deep vein thrombosis [Recovered/Resolved]
  - Infected dermal cyst [Unknown]
